FAERS Safety Report 11079859 (Version 2)
Quarter: 2015Q2

REPORT INFORMATION
  Report Type: Report from Study
  Country: NL (occurrence: NL)
  Receive Date: 20150430
  Receipt Date: 20150521
  Transmission Date: 20150821
  Serious: Yes (Death)
  Sender: FDA-Public Use
  Company Number: PHHY2015NL052056

PATIENT
  Age: 61 Year
  Sex: Female

DRUGS (4)
  1. ANASTROZOLE. [Concomitant]
     Active Substance: ANASTROZOLE
     Indication: PRODUCT USED FOR UNKNOWN INDICATION
     Dosage: 01 MG
     Route: 065
     Dates: start: 201210
  2. ZOMETA [Suspect]
     Active Substance: ZOLEDRONIC ACID
     Indication: METASTASES TO BONE
     Dosage: 4 MG
     Route: 042
     Dates: start: 201212
  3. METHOTREXATE [Concomitant]
     Active Substance: METHOTREXATE
     Indication: PRODUCT USED FOR UNKNOWN INDICATION
     Dosage: 05 MG, QW2 (ONCE WEEKLY 2)
     Route: 065
  4. PARACETAMOL [Concomitant]
     Active Substance: ACETAMINOPHEN
     Indication: PRODUCT USED FOR UNKNOWN INDICATION
     Dosage: 1 G (4X)
     Route: 065
     Dates: start: 201409

REACTIONS (6)
  - Hypercalcaemia [Fatal]
  - Breast cancer metastatic [Fatal]
  - Metastases to lung [Fatal]
  - Metastases to lymph nodes [Fatal]
  - Malignant neoplasm progression [Fatal]
  - Metastases to bone [Fatal]

NARRATIVE: CASE EVENT DATE: 201409
